FAERS Safety Report 5940677-2 (Version None)
Quarter: 2008Q4

REPORT INFORMATION
  Report Type: 
  Country: None (occurrence: None)
  Receive Date: 20081030
  Receipt Date: 20081021
  Transmission Date: 20090506
  Serious: Yes (Hospitalization)
  Sender: FDA-Public Use
  Company Number: TCI2008A05284

PATIENT
  Age: 72 Year
  Sex: Female

DRUGS (3)
  1. ACTOS [Suspect]
     Indication: TYPE 2 DIABETES MELLITUS
     Dosage: 30 MG (30 MG, 1 IN 1 D) PER ORAL
     Route: 048
     Dates: start: 20070101, end: 20081006
  2. BEZATOL SR (BEZAFIBRATE) [Concomitant]
  3. ADALAT CC [Concomitant]

REACTIONS (5)
  - FLUID RETENTION [None]
  - GENERALISED OEDEMA [None]
  - PLEURAL EFFUSION [None]
  - PULMONARY CONGESTION [None]
  - SINUS TACHYCARDIA [None]
